FAERS Safety Report 6670685-8 (Version None)
Quarter: 2010Q2

REPORT INFORMATION
  Report Type: 
  Country: None (occurrence: None)
  Receive Date: 20100405
  Receipt Date: 20100326
  Transmission Date: 20101027
  Serious: Yes (Other)
  Sender: FDA-Public Use
  Company Number: 2010SP018806

PATIENT
  Age: 20 Year
  Sex: Male

DRUGS (3)
  1. SAPHRIS [Suspect]
     Indication: DRUG USE FOR UNKNOWN INDICATION
     Dosage: 10 MG;
  2. VYVANSE     (LISDEXAMPETAMINE DIMESYLATE) [Concomitant]
  3. SEROQUEL [Concomitant]

REACTIONS (4)
  - ANXIETY [None]
  - ARRHYTHMIA [None]
  - DIZZINESS [None]
  - PALPITATIONS [None]
